FAERS Safety Report 15183400 (Version 2)
Quarter: 2018Q3

REPORT INFORMATION
  Report Type: Spontaneous
  Country: JP (occurrence: JP)
  Receive Date: 20180723
  Receipt Date: 20180806
  Transmission Date: 20181010
  Serious: Yes (Hospitalization, Other)
  Sender: FDA-Public Use
  Company Number: JP-MYLANLABS-2018M1053036

PATIENT
  Age: 73 Year
  Sex: Male

DRUGS (9)
  1. BENIDIPINE [Interacting]
     Active Substance: BENIDIPINE
     Indication: PRODUCT USED FOR UNKNOWN INDICATION
     Route: 065
  2. DOBUTAMINE [Concomitant]
     Active Substance: DOBUTAMINE\DOBUTAMINE HYDROCHLORIDE
     Indication: PRODUCT USED FOR UNKNOWN INDICATION
     Dosage: INTRAVENOUS CONTINUOUS DRIP INFUSION; INITIATED SOON AFTER ADMISSION
     Route: 041
  3. QUETIAPINE. [Suspect]
     Active Substance: QUETIAPINE
     Dosage: 150 MG, QD
     Route: 065
  4. TOLVAPTAN [Interacting]
     Active Substance: TOLVAPTAN
     Indication: ACUTE KIDNEY INJURY
     Dosage: INITIATED ON POD 43
     Route: 065
  5. CEFEPIME [Concomitant]
     Active Substance: CEFEPIME HYDROCHLORIDE
     Indication: ENTEROCOCCAL INFECTION
     Dosage: 2?4G/DAY; ADMINISTERED FROM POD 18 TO POD 37
     Route: 065
  6. QUETIAPINE. [Suspect]
     Active Substance: QUETIAPINE
     Indication: DELIRIUM
     Dosage: 50 MG, QD
     Route: 065
  7. FUROSEMIDE. [Concomitant]
     Active Substance: FUROSEMIDE
     Indication: PRODUCT USED FOR UNKNOWN INDICATION
     Dosage: INTRAVENOUS CONTINUOUS DRIP INFUSION; INITIATED SOON AFTER ADMISSION
     Route: 041
  8. MINOCYCLINE [Concomitant]
     Active Substance: MINOCYCLINE\MINOCYCLINE HYDROCHLORIDE
     Indication: PRODUCT USED FOR UNKNOWN INDICATION
     Route: 065
  9. AZOSEMIDE [Concomitant]
     Active Substance: AZOSEMIDE
     Indication: PRODUCT USED FOR UNKNOWN INDICATION
     Route: 065

REACTIONS (5)
  - Drug interaction [Recovered/Resolved]
  - Acute kidney injury [Recovered/Resolved]
  - Nephropathy toxic [Recovered/Resolved]
  - Renal tubular necrosis [Recovered/Resolved]
  - Weight increased [Unknown]
